FAERS Safety Report 4592486-7 (Version None)
Quarter: 2005Q1

REPORT INFORMATION
  Report Type: 
  Country: None (occurrence: None)
  Receive Date: 20050222
  Receipt Date: 20050207
  Transmission Date: 20050727
  Serious: Yes (Hospitalization)
  Sender: FDA-Public Use
  Company Number: 2005BI000791

PATIENT
  Age: 52 Year
  Sex: Female

DRUGS (11)
  1. AVONEX [Suspect]
     Indication: MULTIPLE SCLEROSIS
     Dosage: 30 UG;QW;IM
     Route: 030
     Dates: start: 20030501, end: 20030801
  2. AVONEX [Suspect]
     Indication: MULTIPLE SCLEROSIS
     Dosage: 30 UG;QW;IM
     Route: 030
     Dates: start: 20030801
  3. PLAVIX [Concomitant]
  4. NEXIUM [Concomitant]
  5. GLUCOPHAGE [Concomitant]
  6. HUMULIN [Concomitant]
  7. AVAPRO [Concomitant]
  8. FIBERCON [Concomitant]
  9. DILTIA XT [Concomitant]
  10. DESYREL [Concomitant]
  11. PAXIL [Concomitant]

REACTIONS (7)
  - CEREBROVASCULAR ACCIDENT [None]
  - DEPRESSION [None]
  - HEART RATE IRREGULAR [None]
  - HYPOTENSION [None]
  - MUSCLE SPASMS [None]
  - PAIN IN EXTREMITY [None]
  - TRANSIENT ISCHAEMIC ATTACK [None]
